FAERS Safety Report 4327619-0 (Version None)
Quarter: 2004Q1

REPORT INFORMATION
  Report Type: 
  Country: None (occurrence: None)
  Receive Date: 20040331
  Receipt Date: 20040323
  Transmission Date: 20041129
  Serious: Yes (Other)
  Sender: FDA-Public Use
  Company Number: 200412275US

PATIENT
  Sex: 0

DRUGS (3)
  1. TAXOTERE [Suspect]
  2. ADRIAMYCIN PFS [Concomitant]
  3. CYTOXAN [Concomitant]

REACTIONS (1)
  - MYELODYSPLASTIC SYNDROME [None]
